FAERS Safety Report 8515224-1 (Version None)
Quarter: 2012Q3

REPORT INFORMATION
  Report Type: 
  Country: None (occurrence: None)
  Receive Date: 20120717
  Receipt Date: 20120709
  Transmission Date: 20120928
  Serious: Yes (Death)
  Sender: FDA-Public Use
  Company Number: AU-BRISTOL-MYERS SQUIBB COMPANY-16469124

PATIENT
  Age: 58 Year

DRUGS (1)
  1. IPILIMUMAB [Suspect]
     Indication: MALIGNANT MELANOMA
     Dosage: SINGLE INFUSION
     Dates: start: 20120220, end: 20120220

REACTIONS (1)
  - NEOPLASM MALIGNANT [None]
